FAERS Safety Report 18462986 (Version 2)
Quarter: 2020Q4

REPORT INFORMATION
  Report Type: Spontaneous
  Country: CH (occurrence: CH)
  Receive Date: 20201104
  Receipt Date: 20201109
  Transmission Date: 20210114
  Serious: Yes (Other)
  Sender: FDA-Public Use
  Company Number: CH-009507513-2010CHE011595

PATIENT
  Sex: Female

DRUGS (5)
  1. CAPECITABINE. [Concomitant]
     Active Substance: CAPECITABINE
     Route: 048
     Dates: start: 20200607
  2. CARBOPLATIN. [Concomitant]
     Active Substance: CARBOPLATIN
     Dosage: UNK, QW
     Route: 041
     Dates: start: 20200120, end: 202003
  3. PEMBROLIZUMAB. [Suspect]
     Active Substance: PEMBROLIZUMAB
     Indication: BREAST CANCER METASTATIC
     Dosage: 200 MILLIGRAM, Q3W
     Route: 041
     Dates: start: 20200102, end: 202003
  4. PEMBROLIZUMAB. [Suspect]
     Active Substance: PEMBROLIZUMAB
     Dosage: 200 MILLIGRAM, Q3W
     Route: 041
     Dates: start: 20200828
  5. PACLITAXEL. [Concomitant]
     Active Substance: PACLITAXEL
     Dosage: 80 MILLIGRAM/SQ. METER, QW
     Route: 041
     Dates: start: 20200120, end: 202003

REACTIONS (3)
  - Immune-mediated pneumonitis [Recovered/Resolved]
  - Lymphocytic oesophagitis [Unknown]
  - Gastritis [Unknown]

NARRATIVE: CASE EVENT DATE: 202004
